FAERS Safety Report 7227482-4 (Version None)
Quarter: 2011Q1

REPORT INFORMATION
  Report Type: 
  Country: None (occurrence: None)
  Receive Date: 20110114
  Receipt Date: 20110106
  Transmission Date: 20110831
  Serious: Yes (Hospitalization)
  Sender: FDA-Public Use
  Company Number: JP-BRISTOL-MYERS SQUIBB COMPANY-15396187

PATIENT
  Age: 56 Year
  Sex: Male
  Weight: 67 kg

DRUGS (3)
  1. SAXAGLIPTIN [Suspect]
     Indication: TYPE 2 DIABETES MELLITUS
     Dosage: FORM:TABS
     Route: 048
     Dates: start: 20100309, end: 20100831
  2. FELBINAC [Concomitant]
     Dosage: SUMILU STICK OINTMENT,CREAM ONGOING
     Dates: start: 20100726
  3. BLOPRESS [Concomitant]
     Dosage: FORM:TABS ONGOING

REACTIONS (2)
  - SILENT MYOCARDIAL INFARCTION [None]
  - BLOOD CHOLESTEROL INCREASED [None]
